FAERS Safety Report 4718682-3 (Version None)
Quarter: 2005Q3

REPORT INFORMATION
  Report Type: 
  Country: None (occurrence: None)
  Receive Date: 20050719
  Receipt Date: 20050112
  Transmission Date: 20060218
  Serious: Yes (Other)
  Sender: FDA-Public Use
  Company Number: 2004242279US

PATIENT
  Sex: Female
  Weight: 65.7716 kg

DRUGS (4)
  1. CELEBREX [Suspect]
     Indication: ANKYLOSING SPONDYLITIS
     Dates: start: 20020101, end: 20030101
  2. CELEBREX [Suspect]
     Indication: ARTHRITIS
     Dates: start: 20020101, end: 20030101
  3. VALSARTAN [Concomitant]
  4. ATORVASTATIN CALCIUM [Concomitant]

REACTIONS (3)
  - ABDOMINAL PAIN UPPER [None]
  - FAECES DISCOLOURED [None]
  - INTESTINAL HAEMORRHAGE [None]
